FAERS Safety Report 9499030 (Version 2)
Quarter: 2013Q3

REPORT INFORMATION
  Report Type: Report from Study
  Country: IL (occurrence: IL)
  Receive Date: 20130904
  Receipt Date: 20130911
  Transmission Date: 20140515
  Serious: Yes (Hospitalization, Other)
  Sender: FDA-Public Use
  Company Number: IL-ROCHE-1269958

PATIENT
  Age: 76 Year
  Sex: Female

DRUGS (11)
  1. METHOXY POLYETHYLENE GLYCOL-EPOETIN BETA [Suspect]
     Indication: NEPHROGENIC ANAEMIA
     Route: 042
     Dates: start: 20100603
  2. LIPITOR [Concomitant]
     Indication: HYPERCHOLESTEROLAEMIA
     Route: 065
  3. FOSRENOL [Concomitant]
  4. ASPIRIN [Concomitant]
  5. ELTROXIN [Concomitant]
  6. FOLIC ACID [Concomitant]
  7. OMEPRAZOLE [Concomitant]
     Route: 065
  8. MINIPRESS [Concomitant]
  9. CALCIUM ACETATE [Concomitant]
     Indication: HYPERPARATHYROIDISM
  10. ALPHA D3 [Concomitant]
     Indication: HYPERPARATHYROIDISM
  11. CAPTOPRIL [Concomitant]
     Route: 065

REACTIONS (4)
  - Chronic obstructive pulmonary disease [Recovered/Resolved]
  - Chills [Recovered/Resolved]
  - Abdominal pain [Recovered/Resolved]
  - Arteriovenous graft site infection [Recovering/Resolving]
